FAERS Safety Report 16194820 (Version 1)
Quarter: 2019Q2

REPORT INFORMATION
  Report Type: Spontaneous
  Country: US (occurrence: US)
  Receive Date: 20190414
  Receipt Date: 20190414
  Transmission Date: 20190711
  Serious: No
  Sender: FDA-Public Use
  Company Number: US-009507513-1904USA005278

PATIENT
  Age: 65 Year
  Sex: Male

DRUGS (2)
  1. METFORMIN [Suspect]
     Active Substance: METFORMIN HYDROCHLORIDE
     Dosage: UNK
     Dates: start: 2017
  2. JANUVIA [Suspect]
     Active Substance: SITAGLIPTIN PHOSPHATE
     Indication: BLOOD GLUCOSE INCREASED
     Dosage: 100 MILLIGRAM, ONCE A DAY
     Route: 048
     Dates: start: 2017

REACTIONS (3)
  - Blood glucose decreased [Recovered/Resolved]
  - Glycosylated haemoglobin abnormal [Recovered/Resolved]
  - Glycosylated haemoglobin decreased [Recovered/Resolved]

NARRATIVE: CASE EVENT DATE: 201805
